FAERS Safety Report 22648753 (Version 4)
Quarter: 2023Q4

REPORT INFORMATION
  Report Type: Report from Study
  Country: US (occurrence: US)
  Receive Date: 20230628
  Receipt Date: 20231227
  Transmission Date: 20240109
  Serious: No
  Sender: FDA-Public Use
  Company Number: US-002147023-NVSC2023US146915

PATIENT
  Age: 82 Year
  Sex: Female

DRUGS (1)
  1. PROMACTA [Suspect]
     Active Substance: ELTROMBOPAG OLAMINE
     Indication: Immune thrombocytopenia
     Dosage: 50 MG, QD
     Route: 048

REACTIONS (5)
  - Platelet count decreased [Unknown]
  - Lethargy [Unknown]
  - Visual impairment [Unknown]
  - Product dose omission issue [Unknown]
  - Alopecia [Unknown]

NARRATIVE: CASE EVENT DATE: 20230801
